FAERS Safety Report 17994327 (Version 1)
Quarter: 2020Q3

REPORT INFORMATION
  Report Type: Spontaneous
  Country: US (occurrence: US)
  Receive Date: 20200707
  Receipt Date: 20200707
  Transmission Date: 20201103
  Serious: No
  Sender: FDA-Public Use
  Company Number: None

PATIENT
  Age: 53 Year
  Sex: Male

DRUGS (3)
  1. IPRATROPIUM BROMIDE AND ALBUTEROL SULFATE [Suspect]
     Active Substance: ALBUTEROL SULFATE\IPRATROPIUM BROMIDE
  2. IPRATROPIUM BROMIDE AND ALBUTEROL SULFATE [Suspect]
     Active Substance: ALBUTEROL SULFATE\IPRATROPIUM BROMIDE
     Route: 055
  3. ALBUTEROL SULFATE. [Suspect]
     Active Substance: ALBUTEROL SULFATE
     Dosage: ?          OTHER STRENGTH:0.5/3,  3/3 MG/ML;?
     Route: 055

REACTIONS (7)
  - Device malfunction [None]
  - Product barcode issue [None]
  - Product packaging confusion [None]
  - Cardio-respiratory arrest [None]
  - Wrong product administered [None]
  - Wrong product stored [None]
  - Anaphylactic reaction [None]

NARRATIVE: CASE EVENT DATE: 2020
